FAERS Safety Report 13687123 (Version 3)
Quarter: 2019Q3

REPORT INFORMATION
  Report Type: Report from Study
  Country: US (occurrence: US)
  Receive Date: 20170623
  Receipt Date: 20190710
  Transmission Date: 20191004
  Serious: Yes (Other)
  Sender: FDA-Public Use
  Company Number: US-BRISTOL-MYERS SQUIBB COMPANY-BMS-2017-056072

PATIENT

DRUGS (1)
  1. IPILIMUMAB [Suspect]
     Active Substance: IPILIMUMAB
     Indication: HAEMATOLOGICAL MALIGNANCY
     Dosage: 3 MG/KG, UNK
     Route: 042

REACTIONS (1)
  - Chronic graft versus host disease in liver [Unknown]
